FAERS Safety Report 9050625 (Version 1)
Quarter: 2013Q1

REPORT INFORMATION
  Report Type: Spontaneous
  Country: NL (occurrence: NL)
  Receive Date: 20130205
  Receipt Date: 20130205
  Transmission Date: 20140127
  Serious: Yes (Other)
  Sender: FDA-Public Use
  Company Number: NL-PFIZER INC-2013040258

PATIENT
  Age: 66 Year
  Sex: Female
  Weight: 96 kg

DRUGS (8)
  1. DALACIN [Suspect]
     Indication: SKIN ULCER
     Dosage: 600 MG, 3X/DAY
     Dates: start: 20130119, end: 20130119
  2. MORPHINE [Concomitant]
     Dosage: 0.25 ML, AS NEEDED
  3. PARACETAMOL [Concomitant]
     Dosage: 1000 MG, 4X/DAY
  4. FRISIUM [Concomitant]
     Dosage: 10 MG, 2X/DAY
  5. OMEPRAZOL [Concomitant]
     Dosage: 20 MG, 1X/DAY
  6. METFORMIN [Concomitant]
     Dosage: 500 MG, 1X/DAY
  7. VITAMIN B COMPLEX [Concomitant]
     Dosage: 1 DF, 1X/DAY
  8. HYDROCHLOROTHIAZIDE [Concomitant]
     Dosage: 12.5 MG, 1X/DAY

REACTIONS (1)
  - Angioedema [Recovering/Resolving]
